FAERS Safety Report 8252187-0 (Version None)
Quarter: 2012Q2

REPORT INFORMATION
  Report Type: 
  Country: None (occurrence: None)
  Receive Date: 20120402
  Receipt Date: 20111117
  Transmission Date: 20120825
  Serious: No
  Sender: FDA-Public Use
  Company Number: US-ABBOTT-11P-163-0804456-00

PATIENT
  Sex: Male
  Weight: 88.53 kg

DRUGS (6)
  1. CLARITIN-D [Concomitant]
     Indication: HYPERSENSITIVITY
     Dosage: DAILY DOSE:  UNKNOWN
     Route: 065
  2. ANDROGEL [Suspect]
     Indication: BLOOD TESTOSTERONE DECREASED
     Dosage: DAILY DOSE: 10 GRAM(S), 8 PUMPS PER DAY, VIA PUMP
     Route: 062
     Dates: start: 20101016
  3. ANDROGEL [Suspect]
     Dosage: 4 PUMPS DAILY
     Route: 062
     Dates: start: 20100801, end: 20101001
  4. PREVACID [Concomitant]
     Indication: GASTROOESOPHAGEAL REFLUX DISEASE
     Dosage: DAILY DOSE:  UNKNOWN
     Route: 065
  5. VITAMIN TAB [Concomitant]
     Indication: PRODUCT USED FOR UNKNOWN INDICATION
     Dosage: DAILY DOSE:  UNKNOWN
     Route: 065
  6. ANDROGEL [Suspect]
     Dosage: 7 PUMPS DAILY
     Route: 062
     Dates: start: 20101001, end: 20110201

REACTIONS (9)
  - TREMOR [None]
  - JOINT SWELLING [None]
  - OEDEMA PERIPHERAL [None]
  - NOCTURIA [None]
  - SOMNOLENCE [None]
  - WEIGHT INCREASED [None]
  - HYPERHIDROSIS [None]
  - BLOOD TESTOSTERONE DECREASED [None]
  - INCREASED APPETITE [None]
